FAERS Safety Report 6157650-4 (Version None)
Quarter: 2009Q2

REPORT INFORMATION
  Report Type: 
  Country: None (occurrence: None)
  Receive Date: 20090414
  Receipt Date: 20090414
  Transmission Date: 20091009
  Serious: No
  Sender: FDA-Public Use
  Company Number: None

PATIENT
  Sex: Male

DRUGS (28)
  1. CAPECITABINE 500MG AND 150MG ROCHE [Suspect]
     Indication: PANCREATIC CARCINOMA
     Dosage: 1250MG/M2 TWICE DAILY D1-7 PO
     Route: 048
     Dates: start: 20080511, end: 20090325
  2. GEMCITABINE [Suspect]
     Indication: PANCREATIC CARCINOMA
     Dosage: 1000MG/M2 Q 2 WEEKS IV
     Route: 042
     Dates: start: 20080511, end: 20090325
  3. ASPIRIN [Concomitant]
  4. WALLBUTRIN [Concomitant]
  5. ZETIA [Concomitant]
  6. LEVOTHYROXINE SODIUM [Concomitant]
  7. LISINOPRIL [Concomitant]
  8. LOVASTATIN [Concomitant]
  9. METOPROL [Concomitant]
  10. TRAZODONE HCL [Concomitant]
  11. MORPHINE SULFATE [Concomitant]
  12. ATIVAN [Concomitant]
  13. OXYCODONE HCL [Concomitant]
  14. MILK OF MAGNESIA [Concomitant]
  15. PROUHLOPPERAZIRE [Concomitant]
  16. ZOFRAN [Concomitant]
  17. KADIAN [Concomitant]
  18. RITALIN [Concomitant]
  19. MIRALAX [Concomitant]
  20. LEXAPRO [Concomitant]
  21. INFLUENZA VACCINE [Concomitant]
  22. EXLAX [Concomitant]
  23. VITAMIN B6 [Concomitant]
  24. MAGNESIUM CITRATE [Concomitant]
  25. PLAVIX [Concomitant]
  26. PREVAUID [Concomitant]
  27. DILAUDID [Concomitant]
  28. LIPITOR [Concomitant]

REACTIONS (8)
  - DYSSTASIA [None]
  - ERYTHEMA [None]
  - GAIT DISTURBANCE [None]
  - HYPOAESTHESIA [None]
  - MOTOR DYSFUNCTION [None]
  - OEDEMA PERIPHERAL [None]
  - PAIN IN EXTREMITY [None]
  - SKIN CHAPPED [None]
